FAERS Safety Report 14387134 (Version 2)
Quarter: 2018Q1

REPORT INFORMATION
  Report Type: Report from Study
  Country: US (occurrence: US)
  Receive Date: 20180115
  Receipt Date: 20180119
  Transmission Date: 20180509
  Serious: Yes (Death, Hospitalization, Other)
  Sender: FDA-Public Use
  Company Number: US-ACTELION-A-NJ2015-129041

PATIENT
  Age: 75 Year
  Sex: Female
  Weight: 60.77 kg

DRUGS (4)
  1. WARFARIN [Concomitant]
     Active Substance: WARFARIN
  2. SILDENAFIL. [Concomitant]
     Active Substance: SILDENAFIL
  3. VELETRI [Suspect]
     Active Substance: EPOPROSTENOL
     Indication: PULMONARY ARTERIAL HYPERTENSION
     Dosage: 31.6 NG/KG, PER MIN
     Route: 042
     Dates: start: 20100910
  4. VELETRI [Suspect]
     Active Substance: EPOPROSTENOL
     Dosage: UNK
     Route: 042

REACTIONS (22)
  - Respiratory distress [Unknown]
  - Bronchitis [Unknown]
  - Urinary tract infection [Unknown]
  - Nephrolithiasis [Unknown]
  - Metastatic neoplasm [Fatal]
  - Lung neoplasm malignant [Fatal]
  - Rash [Unknown]
  - Nasopharyngitis [Unknown]
  - Cataract [Unknown]
  - Headache [Unknown]
  - Pancreatic carcinoma [Fatal]
  - Palpitations [Unknown]
  - Wheezing [Unknown]
  - Insomnia [Unknown]
  - Flushing [Unknown]
  - General physical health deterioration [Unknown]
  - Pain in jaw [Unknown]
  - Blood urine present [Unknown]
  - Dyspnoea exertional [Unknown]
  - Diarrhoea [Unknown]
  - Dyspnoea [Unknown]
  - Anxiety [Unknown]

NARRATIVE: CASE EVENT DATE: 20161210
